FAERS Safety Report 14619709 (Version 1)
Quarter: 2018Q1

REPORT INFORMATION
  Report Type: Spontaneous
  Country: BR (occurrence: BR)
  Receive Date: 20180309
  Receipt Date: 20180309
  Transmission Date: 20180509
  Serious: Yes (Other)
  Sender: FDA-Public Use
  Company Number: BR-BAYER-2018-042055

PATIENT
  Age: 33 Year
  Sex: Female

DRUGS (2)
  1. MIRENA [Suspect]
     Active Substance: LEVONORGESTREL
     Indication: CONTRACEPTION
     Dosage: 20 MCG/24HR, CONT
     Route: 015
     Dates: start: 201103
  2. MIRENA [Suspect]
     Active Substance: LEVONORGESTREL

REACTIONS (6)
  - Back pain [Not Recovered/Not Resolved]
  - Procedural pain [Recovered/Resolved]
  - Nephrolithiasis [Recovered/Resolved]
  - Device dislocation [Not Recovered/Not Resolved]
  - Post procedural discomfort [Recovered/Resolved]
  - Device use error [None]

NARRATIVE: CASE EVENT DATE: 2011
